FAERS Safety Report 5608559-3 (Version None)
Quarter: 2008Q1

REPORT INFORMATION
  Report Type: 
  Country: None (occurrence: None)
  Receive Date: 20080125
  Receipt Date: 20080110
  Transmission Date: 20080703
  Serious: Yes (Death, Hospitalization)
  Sender: FDA-Public Use
  Company Number: A-CH2008-19101

PATIENT
  Age: 17 Year
  Sex: Female
  Weight: 41 kg

DRUGS (9)
  1. TRACLEER [Suspect]
     Indication: PULMONARY HYPERTENSION
     Dosage: 125, BID, ORAL
     Route: 048
     Dates: start: 20060101
  2. AZATHIOPRINE SODIUM [Concomitant]
  3. PREDNISONE [Concomitant]
  4. BI-TILDIEM (DILTIAZEM HYDROCHLORIDE) [Concomitant]
  5. RAMIPRIL [Concomitant]
  6. PANTOPRAZOLE SODIUM [Concomitant]
  7. ZOLOFT [Concomitant]
  8. IMOVANE (ZOPICLONE) [Concomitant]
  9. TARDYFERON (FERROUS SULFATE, MUCOPROTEOSE, FOLIC ACID) [Concomitant]

REACTIONS (24)
  - ALANINE AMINOTRANSFERASE INCREASED [None]
  - ASPARTATE AMINOTRANSFERASE INCREASED [None]
  - ASPERGILLOSIS [None]
  - BLOOD ALKALINE PHOSPHATASE INCREASED [None]
  - BLOOD BICARBONATE DECREASED [None]
  - BLOOD CREATINE PHOSPHOKINASE INCREASED [None]
  - BLOOD CREATININE DECREASED [None]
  - BLOOD LACTATE DEHYDROGENASE DECREASED [None]
  - BRONCHOALVEOLAR LAVAGE ABNORMAL [None]
  - C-REACTIVE PROTEIN INCREASED [None]
  - CHOLESTASIS [None]
  - COAGULATION TIME SHORTENED [None]
  - CYTOMEGALOVIRUS INFECTION [None]
  - CYTOMEGALOVIRUS VIRAEMIA [None]
  - DRUG INTERACTION [None]
  - GAMMA-GLUTAMYLTRANSFERASE INCREASED [None]
  - HAEMOGLOBIN DECREASED [None]
  - HYPOPHOSPHATAEMIA [None]
  - METABOLIC ACIDOSIS [None]
  - MUSCLE INJURY [None]
  - PANCYTOPENIA [None]
  - PNEUMONIA [None]
  - PYREXIA [None]
  - THROMBOCYTOPENIA [None]
